FAERS Safety Report 10230798 (Version 1)
Quarter: 2014Q2

REPORT INFORMATION
  Report Type: Spontaneous
  Country: US (occurrence: None)
  Receive Date: 20140610
  Receipt Date: 20140610
  Transmission Date: 20141212
  Serious: No
  Sender: FDA-Public Use
  Company Number: None

PATIENT
  Age: 77 Year
  Sex: Male
  Weight: 82.1 kg

DRUGS (1)
  1. SUNITINIB MALATE (SU011248 L-MALATE; SUTENT) [Suspect]

REACTIONS (1)
  - Blood sodium decreased [None]
